FAERS Safety Report 16358786 (Version 1)
Quarter: 2019Q2

REPORT INFORMATION
  Report Type: Report from Study
  Country: MX (occurrence: MX)
  Receive Date: 20190527
  Receipt Date: 20190527
  Transmission Date: 20190711
  Serious: Yes (Other)
  Sender: FDA-Public Use
  Company Number: PHHY2019MX118819

PATIENT
  Age: 73 Year
  Sex: Male
  Weight: 82 kg

DRUGS (5)
  1. ASPIRINE PROTECT [Concomitant]
     Active Substance: ASPIRIN
     Indication: ANTICOAGULANT THERAPY
     Dosage: 1 DF, QD (12 YEARS AGO)
     Route: 048
  2. EXFORGE HCT [Suspect]
     Active Substance: AMLODIPINE BESYLATE\HYDROCHLOROTHIAZIDE\VALSARTAN
     Dosage: 1 DF, QD (AMLODIPINE 10MG, HYDROCHLOROTHIAZIDE 25MG, VALSARTAN 320MG)
     Route: 048
     Dates: start: 20190322
  3. EXFORGE HCT [Suspect]
     Active Substance: AMLODIPINE BESYLATE\HYDROCHLOROTHIAZIDE\VALSARTAN
     Indication: HYPERTENSION
     Dosage: 1 DF, QD (AMLODIPINE 10MG, HYDROCHLOROTHIAZIDE 25MG, VALSARTAN 320MG)
     Route: 048
     Dates: start: 2014, end: 20190222
  4. SALMETEROL [Concomitant]
     Active Substance: SALMETEROL
     Indication: PROPHYLAXIS
     Dosage: 2 DF, Q24H
     Dates: start: 201811
  5. IPRATROPIUM [Concomitant]
     Active Substance: IPRATROPIUM
     Indication: LUNG DISORDER
     Dosage: 3 DF, Q8H
     Route: 065
     Dates: start: 201811

REACTIONS (2)
  - Blood cholesterol increased [Recovered/Resolved]
  - Cardiac failure [Not Recovered/Not Resolved]

NARRATIVE: CASE EVENT DATE: 201811
